FAERS Safety Report 6678951-7 (Version None)
Quarter: 2010Q2

REPORT INFORMATION
  Report Type: 
  Country: None (occurrence: None)
  Receive Date: 20100413
  Receipt Date: 20100405
  Transmission Date: 20101027
  Serious: Yes (Other)
  Sender: FDA-Public Use
  Company Number: US-ASTRAZENECA-2010SE14783

PATIENT
  Sex: Female

DRUGS (6)
  1. SEROQUEL [Suspect]
     Route: 048
  2. CRESTOR [Suspect]
     Route: 048
  3. DIAZEPAM [Concomitant]
  4. GLYPIZIDE [Concomitant]
  5. HYDROCODONE BITARTRATE [Concomitant]
  6. CARBADOPA [Concomitant]

REACTIONS (3)
  - CEREBROVASCULAR ACCIDENT [None]
  - DEMENTIA ALZHEIMER'S TYPE [None]
  - PARKINSON'S DISEASE [None]
